FAERS Safety Report 8305251-1 (Version None)
Quarter: 2012Q2

REPORT INFORMATION
  Report Type: 
  Country: None (occurrence: None)
  Receive Date: 20120423
  Receipt Date: 20120412
  Transmission Date: 20120825
  Serious: Yes (Hospitalization)
  Sender: FDA-Public Use
  Company Number: FR-INCYTE CORPORATION-2012IN000594

PATIENT
  Sex: Male
  Weight: 170 kg

DRUGS (2)
  1. CLOPIDOGREL [Concomitant]
     Dosage: UNK
     Dates: start: 20110701
  2. INC424 [Suspect]
     Indication: MYELOFIBROSIS
     Dosage: 30 MG, QD
     Route: 048
     Dates: start: 20120204, end: 20120213

REACTIONS (2)
  - HAEMATURIA [None]
  - THROMBOCYTOPENIA [None]
